FAERS Safety Report 16088999 (Version 3)
Quarter: 2022Q2

REPORT INFORMATION
  Report Type: Spontaneous
  Country: US (occurrence: US)
  Receive Date: 20190319
  Receipt Date: 20220503
  Transmission Date: 20220720
  Serious: No
  Sender: FDA-Public Use
  Company Number: US-PFIZER INC-2019109734

PATIENT
  Age: 88 Year
  Sex: Female

DRUGS (6)
  1. LYRICA [Suspect]
     Active Substance: PREGABALIN
     Indication: Neuralgia
     Dosage: 75 MG, 1X/DAY (NIGHT)
     Route: 048
  2. LYRICA [Suspect]
     Active Substance: PREGABALIN
     Indication: Polyneuropathy
  3. CELEBREX [Suspect]
     Active Substance: CELECOXIB
     Indication: Arthritis
     Dosage: 200 MG, 1X/DAY (MORNING)
     Route: 048
  4. CELEBREX [Suspect]
     Active Substance: CELECOXIB
     Indication: Sciatica
  5. CELEBREX [Suspect]
     Active Substance: CELECOXIB
     Indication: Back disorder
  6. CELEBREX [Suspect]
     Active Substance: CELECOXIB
     Indication: Osteoarthritis

REACTIONS (2)
  - Hypotension [Unknown]
  - Tremor [Unknown]
